FAERS Safety Report 6629088-4 (Version None)
Quarter: 2010Q1

REPORT INFORMATION
  Report Type: 
  Country: None (occurrence: None)
  Receive Date: 20100311
  Receipt Date: 20090814
  Transmission Date: 20100710
  Serious: No
  Sender: FDA-Public Use
  Company Number: US-BIOGENIDEC-2009BI025712

PATIENT
  Sex: Female

DRUGS (1)
  1. AVONEX [Suspect]
     Indication: MULTIPLE SCLEROSIS

REACTIONS (7)
  - BALANCE DISORDER [None]
  - DIZZINESS [None]
  - EXCORIATION [None]
  - FALL [None]
  - HEAD INJURY [None]
  - MULTIPLE SCLEROSIS [None]
  - SECONDARY PROGRESSIVE MULTIPLE SCLEROSIS [None]
